FAERS Safety Report 21555383 (Version 1)
Quarter: 2022Q4

REPORT INFORMATION
  Report Type: Spontaneous
  Country: US (occurrence: None)
  Receive Date: 20221103
  Receipt Date: 20221103
  Transmission Date: 20230113
  Serious: Yes (Disabling)
  Sender: FDA-Public Use
  Company Number: None

PATIENT
  Sex: 0

DRUGS (2)
  1. CYANOCOBALAMIN [Suspect]
     Active Substance: CYANOCOBALAMIN
     Indication: Vitamin B12 deficiency
     Dosage: OTHER STRENGTH : MCG/ML;?OTHER QUANTITY : 1 INJECTION(S);?OTHER FREQUENCY : EOD;?
     Route: 030
  2. CYANOCOBALAMIN [Suspect]
     Active Substance: CYANOCOBALAMIN
     Indication: Vitamin B12 deficiency
     Dosage: OTHER STRENGTH : MCG/ML;?OTHER QUANTITY : 1 INJECTION(S);?OTHER FREQUENCY : EOD;?
     Route: 030

REACTIONS (5)
  - Product substitution issue [None]
  - Chromaturia [None]
  - Injection site mass [None]
  - Drug ineffective [None]
  - Product quality issue [None]

NARRATIVE: CASE EVENT DATE: 20221013
